FAERS Safety Report 4316149-8 (Version None)
Quarter: 2004Q1

REPORT INFORMATION
  Report Type: 
  Country: None (occurrence: None)
  Receive Date: 20040311
  Receipt Date: 20040311
  Transmission Date: 20041129
  Serious: No
  Sender: FDA-Public Use
  Company Number: None

PATIENT
  Sex: Male
  Weight: 107 kg

DRUGS (4)
  1. OMEPRAZOLE [Suspect]
     Indication: GASTROOESOPHAGEAL REFLUX DISEASE
     Dosage: 20 MG QD ORAL
     Route: 048
     Dates: start: 20031209, end: 20040202
  2. ROSIGLITAZONE MALEATE [Concomitant]
  3. GLIPIZIDE [Concomitant]
  4. LOPERAMIDE HCL [Concomitant]

REACTIONS (1)
  - RECTAL HAEMORRHAGE [None]
